FAERS Safety Report 8301768-4 (Version None)
Quarter: 2012Q1

REPORT INFORMATION
  Report Type: 
  Country: None (occurrence: None)
  Receive Date: 20120326
  Receipt Date: 20110228
  Transmission Date: 20120608
  Serious: Yes (Other)
  Sender: FDA-Public Use
  Company Number: PHHY2010US60177

PATIENT
  Age: 68 Year
  Sex: Male

DRUGS (1)
  1. TASIGNA [Suspect]
     Indication: CHRONIC MYELOID LEUKAEMIA
     Dosage: 400 MG, BID, ORAL
     Route: 048
     Dates: start: 20100901

REACTIONS (8)
  - WHITE BLOOD CELL COUNT INCREASED [None]
  - CONSTIPATION [None]
  - FLUID OVERLOAD [None]
  - MALAISE [None]
  - EYE HAEMORRHAGE [None]
  - PIGMENTATION DISORDER [None]
  - RASH [None]
  - OEDEMA PERIPHERAL [None]
